FAERS Safety Report 9599411 (Version 1)
Quarter: 2013Q4

REPORT INFORMATION
  Report Type: Spontaneous
  Country: US (occurrence: US)
  Receive Date: 20131004
  Receipt Date: 20131004
  Transmission Date: 20140711
  Serious: No
  Sender: FDA-Public Use
  Company Number: US-AMGEN-USASP2013029542

PATIENT
  Age: 50 Year
  Sex: Female
  Weight: 70.75 kg

DRUGS (12)
  1. ENBREL [Suspect]
     Indication: PRODUCT USED FOR UNKNOWN INDICATION
     Dosage: 50 MG, QWK
     Route: 058
  2. METHYLPRED [Concomitant]
     Dosage: 4 MG, UNK
  3. FOSAMAX [Concomitant]
     Dosage: 10 MG, UNK
  4. LEVOTHYROXIN [Concomitant]
     Dosage: 100 MUG, UNK
  5. METHOTREXATE [Concomitant]
     Dosage: 2.5 MG, UNK
  6. PROZAC [Concomitant]
     Dosage: 20 MG, UNK
  7. CALCIUM [Concomitant]
     Dosage: 600 UNK, UNK
  8. NO DOZ [Concomitant]
     Dosage: 200 MG, UNK
  9. ESTROVEN [Concomitant]
     Dosage: UNK
  10. VITAMIN D                          /00107901/ [Concomitant]
     Dosage: 2000 UNIT, UNK
  11. COQ-10 [Concomitant]
     Dosage: UNK
  12. IBUPROFEN [Concomitant]
     Dosage: 800 MG, UNK

REACTIONS (1)
  - Fungal skin infection [Unknown]
